FAERS Safety Report 8838900 (Version 3)
Quarter: 2013Q2

REPORT INFORMATION
  Report Type: Spontaneous
  Country: DE (occurrence: DE)
  Receive Date: 20121015
  Receipt Date: 20130429
  Transmission Date: 20140414
  Serious: Yes (Other)
  Sender: FDA-Public Use
  Company Number: DE-AMGEN-DEUSP2012064517

PATIENT
  Age: 77 Year
  Sex: Female
  Weight: 66 kg

DRUGS (3)
  1. PROLIA [Suspect]
     Indication: OSTEOPOROSIS POSTMENOPAUSAL
     Dosage: UNK
     Dates: start: 20120925
  2. CALCIUM [Concomitant]
     Indication: HYPOCALCAEMIA
     Dosage: 1000 MG, Q2H
     Route: 048
     Dates: start: 20120929
  3. VITAMIN D /00107901/ [Concomitant]
     Indication: HYPOCALCAEMIA
     Dosage: 20 DROPS 4*PER DAY
     Route: 048
     Dates: start: 20120929

REACTIONS (14)
  - Abasia [Not Recovered/Not Resolved]
  - Balance disorder [Not Recovered/Not Resolved]
  - Paraesthesia [Recovered/Resolved]
  - Visual impairment [Not Recovered/Not Resolved]
  - Muscle spasms [Recovered/Resolved]
  - Meralgia paraesthetica [Recovered/Resolved]
  - Pain [Not Recovered/Not Resolved]
  - Chills [Not Recovered/Not Resolved]
  - Cystitis [Not Recovered/Not Resolved]
  - Constipation [Not Recovered/Not Resolved]
  - Hypoaesthesia [Recovered/Resolved]
  - Muscle twitching [Recovered/Resolved]
  - Myalgia [Unknown]
  - Hypocalcaemia [Recovered/Resolved]
